FAERS Safety Report 19447634 (Version 1)
Quarter: 2021Q2

REPORT INFORMATION
  Report Type: Spontaneous
  Country: US (occurrence: US)
  Receive Date: 20210622
  Receipt Date: 20210622
  Transmission Date: 20210717
  Serious: Yes (Other)
  Sender: FDA-Public Use
  Company Number: None

PATIENT
  Age: 22 Year
  Sex: Female
  Weight: 58.5 kg

DRUGS (6)
  1. ELURYNG [Concomitant]
     Active Substance: ETHINYL ESTRADIOL\ETONOGESTREL
  2. MELATONIN [Concomitant]
     Active Substance: MELATONIN
  3. TIOCONAZOLE 1 [Suspect]
     Active Substance: TIOCONAZOLE
     Indication: VULVOVAGINAL MYCOTIC INFECTION
     Dosage: ?          QUANTITY:1 CAPSULE(S);?
     Route: 067
     Dates: start: 20210621, end: 20210622
  4. BUPROPION. [Concomitant]
     Active Substance: BUPROPION
  5. VITAMIN C [Concomitant]
     Active Substance: ASCORBIC ACID
  6. VITAMIN D [Concomitant]
     Active Substance: VITAMIN D NOS

REACTIONS (5)
  - Vulvovaginal pain [None]
  - Sleep disorder [None]
  - Pain [None]
  - Vulvovaginal inflammation [None]
  - Product substitution issue [None]

NARRATIVE: CASE EVENT DATE: 20210622
